FAERS Safety Report 9416843 (Version 4)
Quarter: 2013Q4

REPORT INFORMATION
  Report Type: Spontaneous
  Country: US (occurrence: US)
  Receive Date: 20130724
  Receipt Date: 20131017
  Transmission Date: 20140711
  Serious: Yes (Hospitalization, Other)
  Sender: FDA-Public Use
  Company Number: US-JNJFOC-20130713248

PATIENT
  Age: 16 Year
  Sex: Male
  Weight: 84.37 kg

DRUGS (3)
  1. INVEGA SUSTENNA [Suspect]
     Indication: BIPOLAR I DISORDER
     Route: 030
     Dates: end: 20130619
  2. INVEGA SUSTENNA [Suspect]
     Indication: BIPOLAR I DISORDER
     Route: 030
     Dates: start: 20130522, end: 20130523
  3. TRAZODONE [Concomitant]
     Indication: SLEEP DISORDER
     Route: 065
     Dates: start: 20120801

REACTIONS (4)
  - Angioedema [Recovered/Resolved]
  - Anaphylactic reaction [Recovered/Resolved]
  - Hypersensitivity [Recovered/Resolved]
  - Asthenia [Recovered/Resolved]
